FAERS Safety Report 11756418 (Version 1)
Quarter: 2015Q4

REPORT INFORMATION
  Report Type: Spontaneous
  Country: US (occurrence: US)
  Receive Date: 20151119
  Receipt Date: 20151119
  Transmission Date: 20160304
  Serious: No
  Sender: FDA-Public Use
  Company Number: US-ALLERGAN-1506834US

PATIENT
  Sex: Male
  Weight: 68.27 kg

DRUGS (2)
  1. COMBIGAN [Suspect]
     Active Substance: BRIMONIDINE TARTRATE\TIMOLOL MALEATE
     Indication: INTRAOCULAR PRESSURE TEST
     Dosage: 2 GTT, BID
     Route: 047
     Dates: start: 20120921, end: 20140407
  2. LUMIGAN [Suspect]
     Active Substance: BIMATOPROST
     Indication: INTRAOCULAR PRESSURE TEST
     Dosage: 2 GTT, QHS
     Route: 047
     Dates: start: 20120921

REACTIONS (2)
  - Intraocular pressure increased [Recovering/Resolving]
  - Drug ineffective [Unknown]
